FAERS Safety Report 14525749 (Version 4)
Quarter: 2019Q2

REPORT INFORMATION
  Report Type: Spontaneous
  Country: GB (occurrence: GB)
  Receive Date: 20180213
  Receipt Date: 20190522
  Transmission Date: 20190711
  Serious: Yes (Hospitalization, Other)
  Sender: FDA-Public Use
  Company Number: GB-MYLANLABS-2018M1009172

PATIENT
  Sex: Male

DRUGS (1)
  1. CLOZARIL [Suspect]
     Active Substance: CLOZAPINE
     Indication: SCHIZOPHRENIA
     Dosage: UNK
     Route: 048
     Dates: start: 20040622

REACTIONS (6)
  - Acute kidney injury [Unknown]
  - Hypophagia [Unknown]
  - Dehydration [Unknown]
  - Schizophrenia [Unknown]
  - Thrombocytopenia [Recovering/Resolving]
  - Macrocytosis [Unknown]
